FAERS Safety Report 6724826-4 (Version None)
Quarter: 2010Q2

REPORT INFORMATION
  Report Type: 
  Country: None (occurrence: None)
  Receive Date: 20100513
  Receipt Date: 20100513
  Transmission Date: 20101027
  Serious: Yes (Hospitalization)
  Sender: FDA-Public Use
  Company Number: None

PATIENT
  Age: 69 Year
  Sex: Female
  Weight: 61.2356 kg

DRUGS (6)
  1. FOSAMAX [Suspect]
     Indication: OSTEOPOROSIS
     Dosage: 70 MG ONCE A WEEK PO
     Route: 048
     Dates: start: 20000401, end: 20060701
  2. ALENDRONATE SODIUM [Suspect]
     Indication: OSTEOPOROSIS
     Dosage: 70 MG ONCE A WEEK PO
     Route: 048
     Dates: start: 20060701, end: 20091201
  3. PREMARIN [Concomitant]
  4. ESTRING [Concomitant]
  5. IMITREX [Concomitant]
  6. LEXAPRO [Concomitant]

REACTIONS (4)
  - FALL [None]
  - FEMUR FRACTURE [None]
  - PRODUCT SUBSTITUTION ISSUE [None]
  - VULVOVAGINAL DRYNESS [None]
